FAERS Safety Report 13615932 (Version 1)
Quarter: 2017Q2

REPORT INFORMATION
  Report Type: Spontaneous
  Country: US (occurrence: US)
  Receive Date: 20170605
  Receipt Date: 20170605
  Transmission Date: 20170830
  Serious: No
  Sender: FDA-Public Use
  Company Number: None

PATIENT
  Age: 56 Year
  Sex: Male
  Weight: 75.5 kg

DRUGS (3)
  1. ABACAVIR/DOLUTEGRAVIR/LAMIVUDINE [Suspect]
     Active Substance: ABACAVIR SULFATE\DOLUTEGRAVIR SODIUM\LAMIVUDINE
     Indication: ATRIAL FIBRILLATION
     Route: 048
     Dates: start: 20150805, end: 20150806
  2. ABACAVIR/DOLUTEGRAVIR/LAMIVUDINE [Suspect]
     Active Substance: ABACAVIR SULFATE\DOLUTEGRAVIR SODIUM\LAMIVUDINE
     Indication: HIV INFECTION
     Route: 048
     Dates: start: 20150805, end: 20150806
  3. ABACAVIR/DOLUTEGRAVIR/LAMIVUDINE [Suspect]
     Active Substance: ABACAVIR SULFATE\DOLUTEGRAVIR SODIUM\LAMIVUDINE
     Indication: MITRAL VALVE REPAIR
     Route: 048
     Dates: start: 20150805, end: 20150806

REACTIONS (4)
  - Headache [None]
  - Insomnia [None]
  - Flushing [None]
  - Lethargy [None]

NARRATIVE: CASE EVENT DATE: 20150805
